FAERS Safety Report 5475033-7 (Version None)
Quarter: 2007Q4

REPORT INFORMATION
  Report Type: 
  Country: None (occurrence: None)
  Receive Date: 20071002
  Receipt Date: 20070921
  Transmission Date: 20080405
  Serious: No
  Sender: FDA-Public Use
  Company Number: US-ELI_LILLY_AND_COMPANY-US200708006235

PATIENT
  Age: 73 Year
  Sex: Male

DRUGS (15)
  1. AMBIEN [Concomitant]
     Dosage: 10 MG, EACH EVENING
     Route: 065
  2. METOPROLOL [Concomitant]
     Dosage: 50 MG, 2/D
     Route: 065
  3. BYETTA [Suspect]
     Indication: TYPE 2 DIABETES MELLITUS
     Dosage: 5 UG, 2/D
     Route: 058
     Dates: start: 20061113, end: 20061213
  4. BYETTA [Suspect]
     Dosage: 10 UG, 2/D
     Route: 058
     Dates: start: 20061213
  5. LISINOPRIL [Concomitant]
     Indication: BLOOD PRESSURE
     Dosage: 40 MG, DAILY (1/D)
     Route: 065
  6. LOPRESSOR [Concomitant]
     Indication: BLOOD PRESSURE
  7. LORAZEPAM [Concomitant]
     Indication: ANXIETY
     Dosage: 0.5 MG, 2/D
     Route: 065
  8. LORAZEPAM [Concomitant]
     Dosage: 0.5 MG, OTHER
     Route: 042
     Dates: start: 20070824, end: 20070824
  9. GLYBURIDE [Concomitant]
     Indication: DIABETES MELLITUS
     Dosage: 5 MG, 2/D
     Route: 065
  10. METFORMIN HCL [Concomitant]
     Indication: DIABETES MELLITUS
  11. LASIX [Concomitant]
     Indication: FLUID RETENTION
     Dosage: 20 MG, DAILY (1/D)
     Route: 065
  12. ASPIRIN [Concomitant]
  13. MAGNESIUM SULFATE [Concomitant]
  14. TYLENOL /USA/ [Concomitant]
  15. LIPITOR [Concomitant]
     Dosage: 10 MG, DAILY (1/D)
     Route: 065

REACTIONS (4)
  - ANXIETY [None]
  - BLOOD GLUCOSE DECREASED [None]
  - BLOOD PRESSURE SYSTOLIC INCREASED [None]
  - DIZZINESS [None]
